FAERS Safety Report 21387010 (Version 1)
Quarter: 2022Q3

REPORT INFORMATION
  Report Type: Report from Study
  Country: US (occurrence: US)
  Receive Date: 20220928
  Receipt Date: 20220928
  Transmission Date: 20221026
  Serious: Yes (Other)
  Sender: FDA-Public Use
  Company Number: US-OTSUKA-2022_045291

PATIENT
  Sex: Male

DRUGS (2)
  1. TOLVAPTAN [Suspect]
     Active Substance: TOLVAPTAN
     Indication: Congenital cystic kidney disease
     Dosage: 45 MG, QD (UPON WAKING)
     Route: 048
     Dates: start: 20220912
  2. TOLVAPTAN [Suspect]
     Active Substance: TOLVAPTAN
     Dosage: 15 MG, QD (8 HOURS LATER)
     Route: 048
     Dates: start: 20220912

REACTIONS (8)
  - Syncope [Unknown]
  - Feeling abnormal [Unknown]
  - Dry throat [Unknown]
  - Fatigue [Unknown]
  - Polydipsia [Unknown]
  - Nocturia [Unknown]
  - Dizziness [Unknown]
  - Thirst [Unknown]
